FAERS Safety Report 6296597-X (Version None)
Quarter: 2009Q3

REPORT INFORMATION
  Report Type: 
  Country: None (occurrence: None)
  Receive Date: 20090804
  Receipt Date: 20090728
  Transmission Date: 20100115
  Serious: Yes (Hospitalization)
  Sender: FDA-Public Use
  Company Number: US-MERCK-0907USA03725

PATIENT
  Age: 35 Year
  Sex: Female

DRUGS (1)
  1. SINGULAIR [Suspect]
     Indication: HYPERSENSITIVITY
     Route: 048
     Dates: start: 20080301, end: 20090601

REACTIONS (19)
  - AMENORRHOEA [None]
  - ANAEMIA [None]
  - ARTHRALGIA [None]
  - CHEST PAIN [None]
  - CONTUSION [None]
  - DIABETES MELLITUS [None]
  - DIZZINESS [None]
  - DYSPNOEA [None]
  - FATIGUE [None]
  - GAIT DISTURBANCE [None]
  - HAEMORRHAGE [None]
  - MENTAL RETARDATION [None]
  - MUSCULOSKELETAL PAIN [None]
  - MYALGIA [None]
  - PALPITATIONS [None]
  - PNEUMONIA [None]
  - PYREXIA [None]
  - SYNCOPE [None]
  - URINARY RETENTION [None]
